FAERS Safety Report 7757097-0 (Version None)
Quarter: 2011Q3

REPORT INFORMATION
  Report Type: 
  Country: None (occurrence: None)
  Receive Date: 20110916
  Receipt Date: 20110908
  Transmission Date: 20111222
  Serious: Yes (Death, Hospitalization)
  Sender: FDA-Public Use
  Company Number: JP-CEPHALON-2011003322

PATIENT
  Sex: Male
  Weight: 55 kg

DRUGS (6)
  1. AMINO ACIDS NOS W/CARBOHYD NOS/ELECTROL NOS [Concomitant]
     Dates: start: 20110526, end: 20110616
  2. MAGNESIUM OXIDE [Concomitant]
     Dates: start: 20110526, end: 20110616
  3. PREDNISOLONE ACETATE [Concomitant]
     Dates: start: 20110526, end: 20110527
  4. TREANDA [Suspect]
     Route: 042
     Dates: start: 20110526, end: 20110616
  5. HYDROCORTISONE SODIUM PHOSPHATE [Concomitant]
     Dates: start: 20110616
  6. GRANISETRON HYDROCHLORIDE [Concomitant]
     Dates: start: 20110526, end: 20110616

REACTIONS (5)
  - CHILLS [None]
  - LYMPHOMA [None]
  - ANAPHYLACTIC SHOCK [None]
  - TUMOUR ASSOCIATED FEVER [None]
  - LIVER DISORDER [None]
